FAERS Safety Report 20440302 (Version 1)
Quarter: 2022Q1

REPORT INFORMATION
  Report Type: Spontaneous
  Country: US (occurrence: None)
  Receive Date: 20220207
  Receipt Date: 20220207
  Transmission Date: 20220423
  Serious: Yes (Hospitalization)
  Sender: FDA-Public Use
  Company Number: None

PATIENT
  Age: 77 Year
  Sex: Male
  Weight: 105.69 kg

DRUGS (2)
  1. WARFARIN SODIUM [Suspect]
     Active Substance: WARFARIN SODIUM
     Indication: Atrial fibrillation
     Dosage: FREQUENCY : DAILY;?
     Route: 048
     Dates: start: 20000101, end: 20220110
  2. WARFARIN SODIUM [Suspect]
     Active Substance: WARFARIN SODIUM
     Indication: Cardiac failure congestive

REACTIONS (4)
  - International normalised ratio fluctuation [None]
  - Haemoglobin decreased [None]
  - Gastric haemorrhage [None]
  - Haemorrhagic arteriovenous malformation [None]

NARRATIVE: CASE EVENT DATE: 20220110
